FAERS Safety Report 25351820 (Version 2)
Quarter: 2025Q2

REPORT INFORMATION
  Report Type: Spontaneous
  Country: DE (occurrence: DE)
  Receive Date: 20250523
  Receipt Date: 20250618
  Transmission Date: 20250717
  Serious: Yes (Other)
  Sender: ALEXION PHARMACEUTICALS
  Company Number: DE-ASTRAZENECA-202505EEA016851DE

PATIENT
  Age: 70 Year

DRUGS (14)
  1. DURVALUMAB [Suspect]
     Active Substance: DURVALUMAB
     Indication: Cholangiocarcinoma
     Route: 065
  2. DURVALUMAB [Suspect]
     Active Substance: DURVALUMAB
     Indication: Gallbladder cancer
  3. DURVALUMAB [Suspect]
     Active Substance: DURVALUMAB
     Indication: Hepatocellular carcinoma
  4. GEMCITABINE [Suspect]
     Active Substance: GEMCITABINE
     Indication: Hepatocellular carcinoma
     Route: 065
  5. GEMCITABINE [Suspect]
     Active Substance: GEMCITABINE
     Indication: Cholangiocarcinoma
  6. GEMCITABINE [Suspect]
     Active Substance: GEMCITABINE
     Indication: Gallbladder cancer
  7. CISPLATIN [Suspect]
     Active Substance: CISPLATIN
     Indication: Gallbladder cancer
     Route: 065
  8. CISPLATIN [Suspect]
     Active Substance: CISPLATIN
     Indication: Hepatocellular carcinoma
  9. CISPLATIN [Suspect]
     Active Substance: CISPLATIN
     Indication: Cholangiocarcinoma
  10. OXALIPLATIN [Concomitant]
     Active Substance: OXALIPLATIN
     Route: 065
  11. ZOLEDRONIC ACID [Concomitant]
     Active Substance: ZOLEDRONIC ACID
     Route: 065
  12. PREDNISOLONE [Concomitant]
     Active Substance: PREDNISOLONE
     Route: 065
  13. FLUOROURACIL\LEUCOVORIN CALCIUM\OXALIPLATIN [Concomitant]
     Active Substance: FLUOROURACIL\LEUCOVORIN CALCIUM\OXALIPLATIN
     Route: 065
  14. CARBOPLATIN [Concomitant]
     Active Substance: CARBOPLATIN
     Route: 065

REACTIONS (3)
  - Acute kidney injury [Unknown]
  - Immune-mediated adverse reaction [Unknown]
  - Blood creatinine increased [Unknown]
